FAERS Safety Report 6288121-2 (Version None)
Quarter: 2009Q3

REPORT INFORMATION
  Report Type: 
  Country: None (occurrence: None)
  Receive Date: 20090729
  Receipt Date: 20090217
  Transmission Date: 20100115
  Serious: No
  Sender: FDA-Public Use
  Company Number: A0766146A

PATIENT
  Age: 28 Year
  Sex: Female
  Weight: 105 kg

DRUGS (3)
  1. ZANTAC [Suspect]
     Dosage: 150MG TWICE PER DAY
     Route: 048
  2. LAMICTAL [Concomitant]
     Route: 048
  3. ZOLOFT [Concomitant]

REACTIONS (1)
  - AMPHETAMINES POSITIVE [None]
